FAERS Safety Report 19018919 (Version 1)
Quarter: 2021Q1

REPORT INFORMATION
  Report Type: Spontaneous
  Country: US (occurrence: US)
  Receive Date: 20210317
  Receipt Date: 20210317
  Transmission Date: 20210420
  Serious: No
  Sender: FDA-Public Use
  Company Number: US-DRREDDYS-USA/USA/21/0132899

PATIENT

DRUGS (4)
  1. SALINE [Suspect]
     Active Substance: SODIUM CHLORIDE
     Indication: MIGRAINE
     Dosage: BOLUS GIVEN OVER 1?HOUR
     Route: 040
  2. KETOROLAC [Suspect]
     Active Substance: KETOROLAC TROMETHAMINE
     Indication: MIGRAINE
     Dosage: MAXIMUM ONE?TIME DOSE OF 30MG
     Route: 042
  3. PROCHLORPERAZINE. [Suspect]
     Active Substance: PROCHLORPERAZINE
     Indication: MIGRAINE
     Dosage: MAXIMUM DOSE OF 10 MG
     Route: 042
  4. DIPHENHYDRAMINE HYDROCHLORIDE. [Suspect]
     Active Substance: DIPHENHYDRAMINE HYDROCHLORIDE
     Indication: MIGRAINE
     Dosage: MAXIMUM ONE?TIME DOSE OF 50 MG
     Route: 042

REACTIONS (1)
  - Abdominal pain [Unknown]
